FAERS Safety Report 12127255 (Version 3)
Quarter: 2016Q1

REPORT INFORMATION
  Report Type: Spontaneous
  Country: JP (occurrence: JP)
  Receive Date: 20160229
  Receipt Date: 20160316
  Transmission Date: 20160526
  Serious: Yes (Death)
  Sender: FDA-Public Use
  Company Number: JP-SA-2016SA039650

PATIENT
  Age: 55 Year
  Sex: Male
  Weight: 57 kg

DRUGS (8)
  1. ISOVORIN [Concomitant]
     Active Substance: LEUCOVORIN CALCIUM
     Dates: start: 20150901, end: 20150901
  2. SINSERON [Concomitant]
     Active Substance: INDISETRON HYDROCHLORIDE
     Dates: start: 20150902, end: 20150906
  3. ELPLAT [Suspect]
     Active Substance: OXALIPLATIN
     Indication: COLON CANCER
     Dosage: INJECTION?86.6 MG/M2
     Route: 041
     Dates: start: 20150901, end: 20150901
  4. 5-FU [Concomitant]
     Active Substance: FLUOROURACIL
     Route: 040
     Dates: start: 20150901, end: 20150901
  5. AVASTIN [Suspect]
     Active Substance: BEVACIZUMAB
     Indication: COLON CANCER
     Route: 041
     Dates: start: 20150901, end: 20150901
  6. DECADRON [Concomitant]
     Active Substance: DEXAMETHASONE
     Dates: start: 20150902, end: 20150903
  7. DEXART [Concomitant]
     Active Substance: DEXAMETHASONE SODIUM PHOSPHATE
     Dates: start: 20150901, end: 20150901
  8. ALOXI [Concomitant]
     Active Substance: PALONOSETRON HYDROCHLORIDE
     Dates: start: 20150901, end: 20150901

REACTIONS (1)
  - Gastrointestinal haemorrhage [Fatal]

NARRATIVE: CASE EVENT DATE: 20150914
